FAERS Safety Report 9706588 (Version 2)
Quarter: 2015Q1

REPORT INFORMATION
  Report Type: Spontaneous
  Country: CN (occurrence: CN)
  Receive Date: 20131125
  Receipt Date: 20150221
  Transmission Date: 20150721
  Serious: Yes (Death, Hospitalization, Other)
  Sender: FDA-Public Use
  Company Number: CN-JNJFOC-20131111936

PATIENT

DRUGS (2)
  1. IBUPROFEN. [Suspect]
     Active Substance: IBUPROFEN
     Route: 048
  2. IBUPROFEN. [Suspect]
     Active Substance: IBUPROFEN
     Indication: PATENT DUCTUS ARTERIOSUS
     Route: 048

REACTIONS (14)
  - Periventricular leukomalacia [Unknown]
  - Blood creatinine increased [Unknown]
  - Off label use [Unknown]
  - Therapeutic response unexpected [Unknown]
  - Death [Fatal]
  - Renal failure [Unknown]
  - Hyperbilirubinaemia [Unknown]
  - Bronchopulmonary dysplasia [Unknown]
  - Necrotising colitis [Unknown]
  - Intraventricular haemorrhage [Unknown]
  - Retinopathy of prematurity [Unknown]
  - Sepsis [Unknown]
  - Oliguria [Unknown]
  - Gastrointestinal haemorrhage [Unknown]
